APPROVED DRUG PRODUCT: DANTROLENE SODIUM
Active Ingredient: DANTROLENE SODIUM
Strength: 20MG/VIAL
Dosage Form/Route: INJECTABLE;INJECTION
Application: A204762 | Product #001 | TE Code: AP
Applicant: HIKMA PHARMACEUTICALS LLC
Approved: Jun 19, 2017 | RLD: No | RS: No | Type: RX